FAERS Safety Report 14612433 (Version 1)
Quarter: 2018Q1

REPORT INFORMATION
  Report Type: Spontaneous
  Country: US (occurrence: US)
  Receive Date: 20180308
  Receipt Date: 20180308
  Transmission Date: 20180509
  Serious: Yes (Hospitalization, Other)
  Sender: FDA-Public Use
  Company Number: US-SA-2018SA060743

PATIENT
  Age: 55 Year
  Sex: Male

DRUGS (5)
  1. SOLOSTAR [Suspect]
     Active Substance: DEVICE
     Indication: TYPE 2 DIABETES MELLITUS
  2. SOLOSTAR [Suspect]
     Active Substance: DEVICE
     Indication: TYPE 2 DIABETES MELLITUS
  3. LANTUS SOLOSTAR [Suspect]
     Active Substance: INSULIN GLARGINE
     Indication: TYPE 2 DIABETES MELLITUS
     Dosage: DOSE:100 UNIT(S)
     Route: 051
  4. LANTUS SOLOSTAR [Suspect]
     Active Substance: INSULIN GLARGINE
     Indication: TYPE 2 DIABETES MELLITUS
     Dosage: DOSE:60 UNIT(S)
     Route: 051
  5. NOVOLOG [Concomitant]
     Active Substance: INSULIN ASPART
     Route: 065

REACTIONS (10)
  - Unevaluable event [Unknown]
  - Lung neoplasm malignant [Unknown]
  - Sarcoidosis [Unknown]
  - Gastrointestinal disorder [Unknown]
  - Pulmonary hypertension [Unknown]
  - Cardiac disorder [Unknown]
  - Hospitalisation [Unknown]
  - Back injury [Unknown]
  - Lymphoma [Unknown]
  - Product use issue [Unknown]

NARRATIVE: CASE EVENT DATE: 2012
